FAERS Safety Report 14682712 (Version 2)
Quarter: 2018Q2

REPORT INFORMATION
  Report Type: Spontaneous
  Country: DE (occurrence: DE)
  Receive Date: 20180327
  Receipt Date: 20180419
  Transmission Date: 20180711
  Serious: Yes (Life-Threatening, Hospitalization, Other)
  Sender: FDA-Public Use
  Company Number: DE-AMGEN-DEUSP2018040769

PATIENT
  Sex: Female

DRUGS (7)
  1. VINCRISTINE [Suspect]
     Active Substance: VINCRISTINE
     Indication: B-CELL LYMPHOMA
     Dosage: 2 MG, Q2WK  THE MOST RECENT DOSE PRIOR TO THE AE ONSET WAS ON 14/FEB/2018 (CYCLE 4)
     Route: 042
     Dates: start: 20171215
  2. PEGFILGRASTIM [Suspect]
     Active Substance: PEGFILGRASTIM
     Indication: B-CELL LYMPHOMA
     Dosage: 6 MG, Q2WK (FOR 5 DAYS)
     Route: 058
     Dates: start: 20171223
  3. INSULIN [Concomitant]
     Active Substance: INSULIN NOS
     Indication: DIABETES MELLITUS
     Dosage: UNK
  4. RITUXIMAB. [Suspect]
     Active Substance: RITUXIMAB
     Indication: B-CELL LYMPHOMA
     Dosage: 570 MG, Q2WK THE MOST RECENT DOSE PRIOR TO THE AE ONSET WAS ON 13/FEB/2018 (CYCLE 4)
     Route: 042
     Dates: start: 20171215
  5. DOXORUBICINE [Suspect]
     Active Substance: DOXORUBICIN
     Indication: B-CELL LYMPHOMA
     Dosage: 78.5 MG, Q2WK THE MOST RECENT DOSE PRIOR TO THE AE ONSET WAS ON 14/FEB/2018 (CYCLE 4)
     Route: 042
     Dates: start: 20171221
  6. CYCLOPHOSPHAMIDE. [Suspect]
     Active Substance: CYCLOPHOSPHAMIDE
     Indication: B-CELL LYMPHOMA
     Dosage: 1177 MG, Q2WK THE MOST RECENT DOSE PRIOR TO THE AE ONSET WAS ON 14/FEB/2018 (CYCLE 4)
     Route: 042
     Dates: start: 20171221
  7. PREDNISOLONE. [Suspect]
     Active Substance: PREDNISOLONE
     Indication: B-CELL LYMPHOMA
     Dosage: 100 MG, Q2WK THE MOST RECENT DOSE PRIOR TO THE AE ONSET WAS ON 14/FEB/2018 (CYCLE 4)
     Route: 048
     Dates: start: 20171215

REACTIONS (2)
  - Hypoglycaemia [Recovered/Resolved]
  - Pneumonia [Recovered/Resolved]

NARRATIVE: CASE EVENT DATE: 2018
